FAERS Safety Report 4297344-3 (Version None)
Quarter: 2004Q1

REPORT INFORMATION
  Report Type: 
  Country: None (occurrence: None)
  Receive Date: 20040212
  Receipt Date: 20030909
  Transmission Date: 20041129
  Serious: Yes (Other)
  Sender: FDA-Public Use
  Company Number: A03200302065

PATIENT
  Age: 77 Year
  Sex: Male
  Weight: 68.0396 kg

DRUGS (6)
  1. AMBEN - ZOLPIEDEM TARTRATE - TABLET - 10 MG [Suspect]
     Indication: INSOMNIA
     Dosage: 10 MG ONCE - ORAL
     Route: 048
     Dates: start: 20030101, end: 20030101
  2. OMEPRAZOLE [Concomitant]
  3. LISINOPRIL [Concomitant]
  4. ASPIRIN [Concomitant]
  5. SIMVASTATIN [Concomitant]
  6. ACEBUTOLOL HYDROCHLORIDE [Concomitant]

REACTIONS (2)
  - HALLUCINATION [None]
  - SPEECH DISORDER [None]
